FAERS Safety Report 7654979-5 (Version None)
Quarter: 2011Q3

REPORT INFORMATION
  Report Type: 
  Country: None (occurrence: None)
  Receive Date: 20110804
  Receipt Date: 20110722
  Transmission Date: 20111222
  Serious: Yes (Other)
  Sender: FDA-Public Use
  Company Number: DE-ELI_LILLY_AND_COMPANY-DE201107005913

PATIENT
  Sex: Female

DRUGS (4)
  1. CALCIUM WITH VITAMIN D [Concomitant]
  2. FORTEO [Suspect]
     Indication: OSTEOPOROSIS
     Dosage: UNK, QD
     Route: 058
     Dates: start: 20110407
  3. FENTANYL [Concomitant]
  4. ANALGESICS [Concomitant]

REACTIONS (3)
  - INSOMNIA [None]
  - ORTHOPNOEA [None]
  - RESPIRATORY DISTRESS [None]
